FAERS Safety Report 9786126 (Version 2)
Quarter: 2013Q4

REPORT INFORMATION
  Report Type: Spontaneous
  Country: RU (occurrence: RU)
  Receive Date: 20131227
  Receipt Date: 20131227
  Transmission Date: 20140711
  Serious: Yes (Other)
  Sender: FDA-Public Use
  Company Number: PHHY2012RU085149

PATIENT
  Age: 54 Year
  Sex: Female

DRUGS (2)
  1. FORADIL COMBI [Suspect]
     Indication: ASTHMA
     Route: 055
     Dates: start: 20120903, end: 20120903
  2. IVABRADINE HYDROCHLORIDE [Concomitant]
     Indication: HYPERTENSION

REACTIONS (2)
  - Blood pressure decreased [Recovered/Resolved]
  - Tachycardia [Recovered/Resolved]
